FAERS Safety Report 25637060 (Version 3)
Quarter: 2025Q3

REPORT INFORMATION
  Report Type: Spontaneous
  Country: SG (occurrence: SG)
  Receive Date: 20250804
  Receipt Date: 20250902
  Transmission Date: 20251021
  Serious: Yes (Other)
  Sender: NOVO NORDISK
  Company Number: SG-NOVOPROD-1489897

PATIENT
  Age: 49 Year
  Sex: Male
  Weight: 94.3 kg

DRUGS (1)
  1. OZEMPIC [Suspect]
     Active Substance: SEMAGLUTIDE
     Indication: Product used for unknown indication
     Dosage: 1 MG, QW
     Dates: start: 20250514, end: 202505

REACTIONS (1)
  - Erectile dysfunction [Recovering/Resolving]
